FAERS Safety Report 15821318 (Version 2)
Quarter: 2019Q1

REPORT INFORMATION
  Report Type: Report from Study
  Country: IT (occurrence: IT)
  Receive Date: 20190114
  Receipt Date: 20190212
  Transmission Date: 20190417
  Serious: Yes (Hospitalization)
  Sender: FDA-Public Use
  Company Number: IT-PFIZER INC-2019014894

PATIENT
  Age: 69 Year
  Sex: Male

DRUGS (1)
  1. TAZOCIN [Suspect]
     Active Substance: PIPERACILLIN SODIUM\TAZOBACTAM SODIUM
     Indication: NEPHRECTOMY
     Dosage: UNK [PIPERACILLIN 2G]/[TAZOBACTAM 0.25G]
     Dates: start: 20150317, end: 20150327

REACTIONS (2)
  - Purpura [Unknown]
  - Hypersensitivity vasculitis [Unknown]

NARRATIVE: CASE EVENT DATE: 20150327
